FAERS Safety Report 9123058 (Version 1)
Quarter: 2013Q1

REPORT INFORMATION
  Report Type: Spontaneous
  Country: US (occurrence: None)
  Receive Date: 20130225
  Receipt Date: 20130225
  Transmission Date: 20140127
  Serious: Yes (Hospitalization)
  Sender: FDA-Public Use
  Company Number: None

PATIENT
  Age: 73 Year
  Sex: Male
  Weight: 70.44 kg

DRUGS (4)
  1. REVLIMID [Suspect]
     Indication: PLASMA CELL MYELOMA
     Dosage: 25MG AT BEDTIME PO?
     Route: 048
     Dates: start: 20130211, end: 20130217
  2. MIRAPEX [Concomitant]
  3. TYLENOL EXTRA STRENGTH [Concomitant]
  4. ULTRAM [Concomitant]

REACTIONS (13)
  - Dyspnoea [None]
  - Rash [None]
  - Oxygen saturation decreased [None]
  - Tachypnoea [None]
  - Tachycardia [None]
  - Cough [None]
  - Chills [None]
  - Urinary retention [None]
  - Pyrexia [None]
  - Leukocytosis [None]
  - Infection [None]
  - Haematuria [None]
  - Anuria [None]
